FAERS Safety Report 15219961 (Version 1)
Quarter: 2018Q3

REPORT INFORMATION
  Report Type: Spontaneous
  Country: CN (occurrence: CN)
  Receive Date: 20180731
  Receipt Date: 20180731
  Transmission Date: 20181010
  Serious: Yes (Other)
  Sender: FDA-Public Use
  Company Number: CN-SUN PHARMACEUTICAL INDUSTRIES LTD-2018R1-179806

PATIENT
  Age: 37 Year
  Sex: Male

DRUGS (2)
  1. TIZANIDINE. [Suspect]
     Active Substance: TIZANIDINE
     Indication: NECK PAIN
     Route: 065
  2. LOXOPROFEN [Suspect]
     Active Substance: LOXOPROFEN
     Indication: NECK PAIN
     Route: 065

REACTIONS (2)
  - Bradycardia [Unknown]
  - Drug interaction [Unknown]
